FAERS Safety Report 14309299 (Version 2)
Quarter: 2018Q1

REPORT INFORMATION
  Report Type: Spontaneous
  Country: US (occurrence: US)
  Receive Date: 20171220
  Receipt Date: 20180119
  Transmission Date: 20180509
  Serious: Yes (Other)
  Sender: FDA-Public Use
  Company Number: US-OREXIGEN THERAPEUTICS, INC.-2037485

PATIENT
  Age: 56 Year
  Sex: Male
  Weight: 132.43 kg

DRUGS (9)
  1. CONTRAVE [Suspect]
     Active Substance: BUPROPION HYDROCHLORIDE\NALTREXONE HYDROCHLORIDE
     Indication: WEIGHT CONTROL
     Dates: start: 2015
  2. CONTRAVE [Suspect]
     Active Substance: BUPROPION HYDROCHLORIDE\NALTREXONE HYDROCHLORIDE
     Route: 048
     Dates: start: 20171205
  3. VITAMINS  /90003601/ [Concomitant]
     Active Substance: VITAMINS
     Route: 048
  4. CALCIUM [Concomitant]
     Active Substance: CALCIUM
     Route: 048
  5. WARFARIN [Concomitant]
     Active Substance: WARFARIN
     Route: 048
  6. CONTRAVE [Suspect]
     Active Substance: BUPROPION HYDROCHLORIDE\NALTREXONE HYDROCHLORIDE
     Route: 048
     Dates: start: 2015, end: 201711
  7. FISH OIL [Concomitant]
     Active Substance: FISH OIL
     Route: 048
  8. VITAMIN C [Concomitant]
     Active Substance: ASCORBIC ACID
     Route: 048
  9. INSULIN [Concomitant]
     Active Substance: INSULIN NOS
     Route: 051

REACTIONS (2)
  - Ulcer haemorrhage [Unknown]
  - Heart rate decreased [Unknown]

NARRATIVE: CASE EVENT DATE: 2016
